FAERS Safety Report 5070952-8 (Version None)
Quarter: 2006Q3

REPORT INFORMATION
  Report Type: 
  Country: None (occurrence: None)
  Receive Date: 20060804
  Receipt Date: 20060621
  Transmission Date: 20061208
  Serious: Yes (Other)
  Sender: FDA-Public Use
  Company Number: JP-AVENTIS-200611931JP

PATIENT
  Age: 78 Year
  Sex: Male

DRUGS (7)
  1. LASIX [Suspect]
     Route: 048
     Dates: end: 20050620
  2. LASIX [Suspect]
     Route: 048
     Dates: start: 20050803, end: 20050817
  3. ARTIST [Suspect]
  4. MICARDIS [Concomitant]
  5. ADALAT [Concomitant]
  6. WARFARIN SODIUM [Concomitant]
  7. TORSEMIDE [Concomitant]

REACTIONS (12)
  - ATRIAL FIBRILLATION [None]
  - BLOOD ALKALINE PHOSPHATASE INCREASED [None]
  - BLOOD LACTATE DEHYDROGENASE INCREASED [None]
  - CARDIAC FAILURE [None]
  - CEREBRAL ARTERY EMBOLISM [None]
  - CEREBRAL INFARCTION [None]
  - HYPERTENSIVE HEART DISEASE [None]
  - PEMPHIGOID [None]
  - RASH [None]
  - RENAL FAILURE [None]
  - RENAL FAILURE CHRONIC [None]
  - THALAMUS HAEMORRHAGE [None]
